FAERS Safety Report 4439522-6 (Version None)
Quarter: 2004Q3

REPORT INFORMATION
  Report Type: 
  Country: None (occurrence: None)
  Receive Date: 20040830
  Receipt Date: 20040813
  Transmission Date: 20050211
  Serious: Yes (Death)
  Sender: FDA-Public Use
  Company Number: 04P-167-0270708-00

PATIENT
  Age: 66 Year
  Sex: Female
  Weight: 65 kg

DRUGS (15)
  1. HUMIRA [Suspect]
     Indication: RHEUMATOID ARTHRITIS
     Dosage: 40 MG, 1 IN 2 WK, SUBCUTANEOUS
     Route: 058
     Dates: start: 20031112
  2. PREDNISOLONE [Concomitant]
  3. LANSOPRAZOLE [Concomitant]
  4. ISOSORBIDE MONONITRATE [Concomitant]
  5. ACETYLSALICYLIC ACID [Concomitant]
  6. CALCIUM D3 ^STADA^ [Concomitant]
  7. BISPHOSPHATE [Concomitant]
  8. LISINOPRIL [Concomitant]
  9. FLECAINIDE ACETATE [Concomitant]
  10. SENNA [Concomitant]
  11. BETAHISTINE [Concomitant]
  12. VENLAFAXINE [Concomitant]
  13. ATORVASTATIN CALCIUM [Concomitant]
  14. PARACETAMOL [Concomitant]
  15. TRAMADOL HCL [Concomitant]

REACTIONS (1)
  - SUBDURAL HAEMORRHAGE [None]
